FAERS Safety Report 5011209-0 (Version None)
Quarter: 2006Q2

REPORT INFORMATION
  Report Type: 
  Country: None (occurrence: None)
  Receive Date: 20060523
  Receipt Date: 20060523
  Transmission Date: 20061013
  Serious: Yes (Hospitalization)
  Sender: FDA-Public Use
  Company Number: None

PATIENT
  Age: 49 Year
  Sex: Male
  Weight: 86.1834 kg

DRUGS (3)
  1. TARGRETIN [Suspect]
     Indication: METASTASIS
     Dosage: 11 CAPS QD PO
     Route: 048
     Dates: start: 20060303, end: 20060410
  2. TARGRETIN [Suspect]
     Indication: THYMOMA
     Dosage: 11 CAPS QD PO
     Route: 048
     Dates: start: 20060303, end: 20060410
  3. TAXOTERE [Suspect]
     Dosage: 73.5 MG Q WEEK X3/4 WEEK IV DRIP
     Route: 042
     Dates: start: 20060303, end: 20060507

REACTIONS (1)
  - PNEUMONIA [None]
